FAERS Safety Report 9379590 (Version 2)
Quarter: 2013Q3

REPORT INFORMATION
  Report Type: Spontaneous
  Country: FR (occurrence: FR)
  Receive Date: 20130702
  Receipt Date: 20130821
  Transmission Date: 20140515
  Serious: Yes (Hospitalization)
  Sender: FDA-Public Use
  Company Number: FR-TEVA-416239ISR

PATIENT
  Age: 84 Year
  Sex: Male

DRUGS (1)
  1. FUROSEMIDE TEVA [Suspect]
     Indication: PRODUCT USED FOR UNKNOWN INDICATION
     Route: 048

REACTIONS (2)
  - Pulmonary oedema [Unknown]
  - Nervous system disorder [Unknown]
